FAERS Safety Report 19744629 (Version 1)
Quarter: 2021Q3

REPORT INFORMATION
  Report Type: Spontaneous
  Country: US (occurrence: US)
  Receive Date: 20210825
  Receipt Date: 20210825
  Transmission Date: 20211014
  Serious: No
  Sender: FDA-Public Use
  Company Number: US-PFIZER INC-202100956347

PATIENT
  Age: 37 Year
  Sex: Female

DRUGS (1)
  1. MEKTOVI [Suspect]
     Active Substance: BINIMETINIB
     Dosage: UNK

REACTIONS (1)
  - Loss of personal independence in daily activities [Unknown]
